FAERS Safety Report 10644948 (Version 1)
Quarter: 2014Q4

REPORT INFORMATION
  Report Type: Spontaneous
  Country: GB (occurrence: GB)
  Receive Date: 20141211
  Receipt Date: 20141211
  Transmission Date: 20150529
  Serious: Yes (Other)
  Sender: FDA-Public Use
  Company Number: GB-ACCORD-027428

PATIENT
  Age: 48 Year
  Sex: Male
  Weight: 82 kg

DRUGS (14)
  1. METHOTREXATE [Suspect]
     Active Substance: METHOTREXATE
     Indication: PRODUCT USED FOR UNKNOWN INDICATION
     Dates: start: 20140815
  2. EPADERM [Concomitant]
     Dates: start: 20141107
  3. HYLO-TEAR [Concomitant]
     Dates: start: 20140915, end: 20141013
  4. INDAPAMIDE/INDAPAMIDE HEMIHYDRATE [Concomitant]
     Dates: start: 20140926
  5. FLUOROMETHOLONE/FLUOROMETHOLONE ACETATE [Concomitant]
     Dates: start: 20141107, end: 20141114
  6. BUDESONIDE. [Concomitant]
     Active Substance: BUDESONIDE
     Dates: start: 20140926, end: 20141024
  7. DERMOL [Concomitant]
     Active Substance: BENZALKONIUM CHLORIDE\CHLORHEXIDINE HYDROCHLORIDE\ISOPROPYL MYRISTATE\PARAFFIN
     Dates: start: 20141107
  8. OMEPRAZOLE. [Concomitant]
     Active Substance: OMEPRAZOLE
     Dates: start: 20140926
  9. PREDNISOLONE. [Concomitant]
     Active Substance: PREDNISOLONE
     Dates: start: 20140926, end: 20141026
  10. SALBUTAMOL [Concomitant]
     Active Substance: ALBUTEROL
     Dates: start: 20140915
  11. FOLIC ACID. [Concomitant]
     Active Substance: FOLIC ACID
     Dates: start: 20140815
  12. CLOBETASOL/CLOBETASOL PROPIONATE [Concomitant]
     Dates: start: 20140815, end: 20141024
  13. BETAMETHASONE/BETAMETHASONE ACETATE/BETAMETHASONE BENZOATE/BETAMETHASONE BUTYRATE PROPION/BETAMETHAS [Concomitant]
     Dates: start: 20140815, end: 20140912
  14. DROPODEX [Concomitant]
     Dates: start: 20140815

REACTIONS (1)
  - Neuropathy peripheral [Unknown]

NARRATIVE: CASE EVENT DATE: 20141124
